FAERS Safety Report 10463346 (Version 19)
Quarter: 2016Q3

REPORT INFORMATION
  Report Type: Report from Study
  Country: CA (occurrence: CA)
  Receive Date: 20140919
  Receipt Date: 20160816
  Transmission Date: 20161109
  Serious: Yes (Hospitalization, Other)
  Sender: FDA-Public Use
  Company Number: CA-ROCHE-1463838

PATIENT
  Age: 70 Year
  Sex: Female

DRUGS (20)
  1. RABEPRAZOLE [Concomitant]
     Active Substance: RABEPRAZOLE
  2. ATORVASTATIN [Concomitant]
     Active Substance: ATORVASTATIN
  3. ACETYLSALICYLIC ACID [Concomitant]
     Active Substance: ASPIRIN
  4. SALBUTAMOL [Concomitant]
     Active Substance: ALBUTEROL
  5. GLYBURIDE. [Concomitant]
     Active Substance: GLYBURIDE
  6. RISEDRONATE [Concomitant]
     Active Substance: RISEDRONATE SODIUM
  7. ZAROXOLYN [Concomitant]
     Active Substance: METOLAZONE
  8. ADVAIR HFA [Concomitant]
     Active Substance: FLUTICASONE PROPIONATE\SALMETEROL XINAFOATE
  9. HUMALOG [Concomitant]
     Active Substance: INSULIN LISPRO
  10. IPRATROPIUM [Concomitant]
     Active Substance: IPRATROPIUM
  11. CLOBETASOL [Concomitant]
     Active Substance: CLOBETASOL
     Route: 061
  12. METOPROLOL. [Concomitant]
     Active Substance: METOPROLOL
  13. ACTEMRA [Suspect]
     Active Substance: TOCILIZUMAB
     Indication: RHEUMATOID ARTHRITIS
     Route: 042
     Dates: start: 20140820
  14. LISINOPRIL. [Concomitant]
     Active Substance: LISINOPRIL
  15. ATROVENT [Concomitant]
     Active Substance: IPRATROPIUM BROMIDE
     Dosage: AS REQUIRED.
     Route: 065
  16. PREDNISONE. [Concomitant]
     Active Substance: PREDNISONE
     Route: 065
  17. FUROSEMIDE. [Concomitant]
     Active Substance: FUROSEMIDE
  18. TYLENOL WITH CODEINE [Concomitant]
     Active Substance: ACETAMINOPHEN\CODEINE PHOSPHATE
  19. HUMULIN N [Concomitant]
     Active Substance: INSULIN HUMAN
  20. TOLOXIN (CANADA) [Concomitant]

REACTIONS (15)
  - Pain in extremity [Not Recovered/Not Resolved]
  - Contusion [Unknown]
  - Cardiac failure congestive [Unknown]
  - Retinal tear [Recovered/Resolved]
  - Nausea [Recovered/Resolved]
  - Abdominal pain [Recovering/Resolving]
  - Therapy non-responder [Not Recovered/Not Resolved]
  - Therapeutic response decreased [Unknown]
  - Arthralgia [Unknown]
  - Pancreatitis [Unknown]
  - Epistaxis [Unknown]
  - Headache [Unknown]
  - Fall [Unknown]
  - Activities of daily living impaired [Unknown]
  - Vision blurred [Unknown]

NARRATIVE: CASE EVENT DATE: 20140820
